FAERS Safety Report 7668080-8 (Version None)
Quarter: 2011Q3

REPORT INFORMATION
  Report Type: 
  Country: None (occurrence: None)
  Receive Date: 20110808
  Receipt Date: 20110804
  Transmission Date: 20111222
  Serious: Yes (Other)
  Sender: FDA-Public Use
  Company Number: US-PFIZER INC-2010079662

PATIENT
  Sex: Female

DRUGS (8)
  1. CHANTIX [Suspect]
     Indication: SMOKING CESSATION THERAPY
     Dosage: 0.5 MG, UNK
     Dates: start: 20080201, end: 20081001
  2. CYMBALTA [Concomitant]
     Indication: DEPRESSION
     Dosage: UNK
     Dates: start: 20040901, end: 20100401
  3. CYMBALTA [Concomitant]
     Indication: ANXIETY
  4. ALPRAZOLAM [Concomitant]
     Indication: ANXIETY
     Dosage: UNK
     Dates: start: 20020201, end: 20090501
  5. LORTAB [Concomitant]
     Indication: PAIN
     Dosage: UNK
     Dates: start: 19980101
  6. CHANTIX [Suspect]
     Dosage: 1 MG, UNK
     Dates: start: 20090201, end: 20090501
  7. LORAZEPAM [Concomitant]
     Indication: ANXIETY
     Dosage: UNK
     Dates: start: 20030401, end: 20110301
  8. BACLOFEN [Concomitant]
     Indication: HYPOTONIA
     Dosage: UNK
     Dates: start: 20000101

REACTIONS (5)
  - AGGRESSION [None]
  - MENTAL DISORDER [None]
  - DEPRESSION [None]
  - ANXIETY [None]
  - SUICIDAL IDEATION [None]
